FAERS Safety Report 4603686-1 (Version None)
Quarter: 2005Q1

REPORT INFORMATION
  Report Type: 
  Country: None (occurrence: None)
  Receive Date: 20050310
  Receipt Date: 20050301
  Transmission Date: 20050727
  Serious: Yes (Life-Threatening)
  Sender: FDA-Public Use
  Company Number: DK-JNJFOC-20050300715

PATIENT
  Sex: Female
  Weight: 59 kg

DRUGS (2)
  1. DURAGESIC-100 [Suspect]
     Route: 062
  2. NORITREN [Suspect]
     Indication: DRUG USE FOR UNKNOWN INDICATION
     Route: 065

REACTIONS (6)
  - DIZZINESS [None]
  - FEAR [None]
  - FEELING HOT [None]
  - HEADACHE [None]
  - INITIAL INSOMNIA [None]
  - NAUSEA [None]
